FAERS Safety Report 15381232 (Version 2)
Quarter: 2018Q3

REPORT INFORMATION
  Report Type: Spontaneous
  Country: CH (occurrence: CH)
  Receive Date: 20180913
  Receipt Date: 20180924
  Transmission Date: 20181010
  Serious: Yes (Death)
  Sender: FDA-Public Use
  Company Number: CH-BAYER-2017-232249

PATIENT
  Age: 74 Year
  Sex: Male

DRUGS (1)
  1. NEXAVAR [Suspect]
     Active Substance: SORAFENIB
     Indication: ACUTE MYELOID LEUKAEMIA
     Dosage: 400 MG, BID
     Dates: start: 20171207, end: 201801

REACTIONS (3)
  - Product use in unapproved indication [None]
  - Off label use [None]
  - Acute myeloid leukaemia [Fatal]

NARRATIVE: CASE EVENT DATE: 2018
